FAERS Safety Report 13380894 (Version 2)
Quarter: 2017Q2

REPORT INFORMATION
  Report Type: Spontaneous
  Country: IN (occurrence: IN)
  Receive Date: 20170329
  Receipt Date: 20170410
  Transmission Date: 20170830
  Serious: Yes (Hospitalization, Other)
  Sender: FDA-Public Use
  Company Number: IN-ALEMBIC PHARMACUETICALS LIMITED-2017SCAL000262

PATIENT

DRUGS (4)
  1. LITHIUM CARBONATE. [Suspect]
     Active Substance: LITHIUM CARBONATE
     Indication: BIPOLAR DISORDER
     Dosage: 600 MG, QD
  2. LOSARTAN POTASSIUM. [Suspect]
     Active Substance: LOSARTAN POTASSIUM
     Indication: HYPERTENSION
     Dosage: 25 MG, UNK
  3. METOPROLOL. [Concomitant]
     Active Substance: METOPROLOL
     Indication: HYPERTENSION
     Dosage: 25 MG, UNK
  4. LEVOTHYROXINE. [Concomitant]
     Active Substance: LEVOTHYROXINE
     Indication: PRODUCT USED FOR UNKNOWN INDICATION
     Dosage: 12.5 MCG, UNK

REACTIONS (11)
  - Ataxia [Unknown]
  - Atrioventricular block complete [Unknown]
  - Dizziness [Unknown]
  - Hypotension [Unknown]
  - Atrial fibrillation [Unknown]
  - Cardiotoxicity [Unknown]
  - Toxicity to various agents [Recovering/Resolving]
  - Sinus bradycardia [Unknown]
  - Hypothyroidism [Unknown]
  - Venous pressure jugular increased [Unknown]
  - Tremor [Unknown]
